FAERS Safety Report 15517034 (Version 1)
Quarter: 2018Q4

REPORT INFORMATION
  Report Type: Spontaneous
  Country: US (occurrence: US)
  Receive Date: 20181011
  Receipt Date: 20181011
  Transmission Date: 20190205
  Serious: Yes (Hospitalization)
  Sender: FDA-Public Use
  Company Number: None

PATIENT
  Age: 29 Year
  Sex: Male

DRUGS (3)
  1. PROAIR HFA [Concomitant]
     Active Substance: ALBUTEROL SULFATE
  2. AQUADEKS [Concomitant]
     Active Substance: MINERALS\VITAMINS
  3. CREON [Suspect]
     Active Substance: PANCRELIPASE AMYLASE\PANCRELIPASE LIPASE\PANCRELIPASE PROTEASE
     Indication: CYSTIC FIBROSIS
     Dosage: ?          OTHER STRENGTH:24,000U;OTHER DOSE:72,000U;OTHER FREQUENCY:5 TIMES DAILY;?
     Route: 048
     Dates: start: 20180423

REACTIONS (2)
  - Cystic fibrosis [None]
  - Condition aggravated [None]

NARRATIVE: CASE EVENT DATE: 20181009
